FAERS Safety Report 8070966-X (Version None)
Quarter: 2012Q1

REPORT INFORMATION
  Report Type: 
  Country: None (occurrence: None)
  Receive Date: 20120125
  Receipt Date: 20120119
  Transmission Date: 20120608
  Serious: Yes (Hospitalization, Other)
  Sender: FDA-Public Use
  Company Number: US-MERCK-1102USA02323

PATIENT
  Age: 56 Year
  Sex: Female

DRUGS (6)
  1. FOSAMAX PLUS D [Suspect]
     Route: 048
     Dates: start: 20050922
  2. FOSAMAX [Suspect]
     Route: 048
     Dates: start: 20080301, end: 20090401
  3. FOSAMAX [Suspect]
     Indication: OSTEOPENIA
     Route: 048
     Dates: start: 20020725, end: 20080301
  4. BUSPAR [Concomitant]
     Indication: ANXIETY
     Route: 065
     Dates: start: 19900101
  5. FOSAMAX [Suspect]
     Indication: OSTEOPOROSIS
     Route: 048
     Dates: start: 20020725, end: 20080301
  6. BUSPAR [Concomitant]
     Indication: DEPRESSION
     Route: 065
     Dates: start: 19900101

REACTIONS (28)
  - HYPOKALAEMIA [None]
  - HYPERCALCAEMIA [None]
  - OVARIAN MASS [None]
  - NAUSEA [None]
  - OVARIAN CANCER [None]
  - BILIARY DILATATION [None]
  - IMPAIRED HEALING [None]
  - PARAESTHESIA [None]
  - HYPERCHOLESTEROLAEMIA [None]
  - CHOLELITHIASIS [None]
  - HYPERLIPIDAEMIA [None]
  - LOW TURNOVER OSTEOPATHY [None]
  - CHOLECYSTITIS [None]
  - RENAL CYST [None]
  - BACK PAIN [None]
  - FATIGUE [None]
  - FEMUR FRACTURE [None]
  - OVARIAN NEOPLASM [None]
  - OSTEOARTHRITIS [None]
  - FIBROMATOSIS [None]
  - HYPERGAMMAGLOBULINAEMIA BENIGN MONOCLONAL [None]
  - HEPATIC CYST [None]
  - SEASONAL ALLERGY [None]
  - HAEMOGLOBIN DECREASED [None]
  - RENAL FAILURE ACUTE [None]
  - SCOLIOSIS [None]
  - VITAMIN D DEFICIENCY [None]
  - JOINT EFFUSION [None]
